FAERS Safety Report 20702066 (Version 1)
Quarter: 2022Q2

REPORT INFORMATION
  Report Type: Spontaneous
  Country: US (occurrence: None)
  Receive Date: 20220411
  Receipt Date: 20220411
  Transmission Date: 20220720
  Serious: No
  Sender: FDA-Public Use
  Company Number: None

PATIENT
  Age: 56 Year
  Sex: Female
  Weight: 117 kg

DRUGS (1)
  1. BUTRANS [Suspect]
     Active Substance: BUPRENORPHINE
     Indication: Pain
     Dosage: OTHER FREQUENCY : Q7 DAYS;?
     Route: 062
     Dates: start: 20220215, end: 20220329

REACTIONS (1)
  - Rash [None]

NARRATIVE: CASE EVENT DATE: 20220329
